FAERS Safety Report 23661443 (Version 1)
Quarter: 2024Q1

REPORT INFORMATION
  Report Type: Spontaneous
  Country: JP (occurrence: JP)
  Receive Date: 20240322
  Receipt Date: 20240322
  Transmission Date: 20240410
  Serious: Yes (Other)
  Sender: FDA-Public Use
  Company Number: JP-CHUGAI-2024009030

PATIENT
  Age: 6 Decade
  Sex: Male

DRUGS (1)
  1. HEMLIBRA [Suspect]
     Active Substance: EMICIZUMAB-KXWH
     Indication: Haemophilia A without inhibitors
     Dosage: 6 MILLIGRAM, ONCE/4WEEKS
     Route: 058
     Dates: start: 2023

REACTIONS (3)
  - Blood loss anaemia [Not Recovered/Not Resolved]
  - Mouth haemorrhage [Recovered/Resolved]
  - Fatigue [Unknown]

NARRATIVE: CASE EVENT DATE: 20240301
